FAERS Safety Report 5239187-X (Version None)
Quarter: 2007Q1

REPORT INFORMATION
  Report Type: 
  Country: None (occurrence: None)
  Receive Date: 20061208
  Receipt Date: 20050909
  Transmission Date: 20070707
  Serious: Yes (Other)
  Sender: FDA-Public Use
  Company Number: 2005UW13327

PATIENT
  Age: 63 Year
  Sex: Female
  Weight: 61.234 kg

DRUGS (3)
  1. CRESTOR [Suspect]
     Indication: BLOOD CHOLESTEROL INCREASED
     Dosage: 5 MG QD PO
     Route: 048
     Dates: start: 20050829
  2. ACCUPRIL [Concomitant]
  3. INSULIN [Concomitant]

REACTIONS (5)
  - FATIGUE [None]
  - GAIT DISTURBANCE [None]
  - JOINT LOCK [None]
  - OEDEMA PERIPHERAL [None]
  - PAIN IN EXTREMITY [None]
